FAERS Safety Report 18498546 (Version 1)
Quarter: 2020Q4

REPORT INFORMATION
  Report Type: Spontaneous
  Country: US (occurrence: US)
  Receive Date: 20201112
  Receipt Date: 20201112
  Transmission Date: 20210114
  Serious: No
  Sender: FDA-Public Use
  Company Number: US-INCYTE CORPORATION-2020IN011018

PATIENT

DRUGS (1)
  1. JAKAFI [Suspect]
     Active Substance: RUXOLITINIB
     Indication: THALASSAEMIA ALPHA
     Dosage: 20 MILLIGRAM, BID
     Route: 048
     Dates: start: 202010

REACTIONS (1)
  - Off label use [Unknown]
